FAERS Safety Report 23063410 (Version 1)
Quarter: 2023Q4

REPORT INFORMATION
  Report Type: Spontaneous
  Country: US (occurrence: US)
  Receive Date: 20231013
  Receipt Date: 20231013
  Transmission Date: 20240110
  Serious: Yes (Hospitalization)
  Sender: FDA-Public Use
  Company Number: US-LUOXIN-LUX-2023-US-LIT-00049

PATIENT
  Age: 40 Year
  Sex: Female

DRUGS (9)
  1. ALBUTEROL SULFATE [Suspect]
     Active Substance: ALBUTEROL SULFATE
     Indication: Dyspnoea
  2. ALBUTEROL SULFATE [Suspect]
     Active Substance: ALBUTEROL SULFATE
     Indication: Cough
  3. ALBUTEROL SULFATE [Suspect]
     Active Substance: ALBUTEROL SULFATE
     Indication: Endometriosis
  4. AZITHROMYCIN [Suspect]
     Active Substance: AZITHROMYCIN
     Indication: Dyspnoea
  5. AZITHROMYCIN [Suspect]
     Active Substance: AZITHROMYCIN
     Indication: Cough
  6. AZITHROMYCIN [Suspect]
     Active Substance: AZITHROMYCIN
     Indication: Endometriosis
  7. GUAIFENESIN [Suspect]
     Active Substance: GUAIFENESIN
     Indication: Cough
  8. GUAIFENESIN [Suspect]
     Active Substance: GUAIFENESIN
     Indication: Dyspnoea
  9. GUAIFENESIN [Suspect]
     Active Substance: GUAIFENESIN
     Indication: Endometriosis

REACTIONS (1)
  - Drug ineffective [Unknown]
